FAERS Safety Report 22354473 (Version 2)
Quarter: 2023Q2

REPORT INFORMATION
  Report Type: Report from Study
  Country: US (occurrence: US)
  Receive Date: 20230523
  Receipt Date: 20230629
  Transmission Date: 20230722
  Serious: Yes (Death, Hospitalization)
  Sender: FDA-Public Use
  Company Number: US-MIRATI-MT2023PM04008

PATIENT
  Sex: Female
  Weight: 58.957 kg

DRUGS (14)
  1. KRAZATI [Suspect]
     Active Substance: ADAGRASIB
     Indication: Colon cancer
     Dosage: 600 MG, BID
     Route: 048
     Dates: start: 20230422, end: 20230428
  2. CEFUROXIME AXETIL [Concomitant]
     Active Substance: CEFUROXIME AXETIL
  3. ELIQUIS [Concomitant]
     Active Substance: APIXABAN
  4. HYDROCHLOROTHIAZIDE [Concomitant]
     Active Substance: HYDROCHLOROTHIAZIDE
  5. ISOSORBIDE DINITRATE [Concomitant]
     Active Substance: ISOSORBIDE DINITRATE
  6. ZOFRAN [Concomitant]
     Active Substance: ONDANSETRON HYDROCHLORIDE
  7. LOPERAMIDE [Concomitant]
     Active Substance: LOPERAMIDE
  8. METOPROLOL SUCCINATE [Concomitant]
     Active Substance: METOPROLOL SUCCINATE
  9. NITROGLYCERIN [Concomitant]
     Active Substance: NITROGLYCERIN
  10. POTASSIUM CHLORIDE [Concomitant]
     Active Substance: POTASSIUM CHLORIDE
  11. PROCHLORPERAZINE MALEATE [Concomitant]
     Active Substance: PROCHLORPERAZINE MALEATE
  12. TYLENOL [Concomitant]
     Active Substance: ACETAMINOPHEN
  13. ATORVASTATIN [Concomitant]
     Active Substance: ATORVASTATIN
  14. LOMOTIL [Concomitant]
     Active Substance: ATROPINE SULFATE\DIPHENOXYLATE HYDROCHLORIDE

REACTIONS (4)
  - Status epilepticus [Fatal]
  - Encephalopathy [Fatal]
  - Chest pain [Recovered/Resolved]
  - Electrocardiogram QT prolonged [Recovered/Resolved]

NARRATIVE: CASE EVENT DATE: 20230428
